FAERS Safety Report 13753925 (Version 1)
Quarter: 2017Q3

REPORT INFORMATION
  Report Type: Spontaneous
  Country: US (occurrence: US)
  Receive Date: 20170714
  Receipt Date: 20170714
  Transmission Date: 20171127
  Serious: No
  Sender: FDA-Public Use
  Company Number: US-ASTRAZENECA-2017SE70103

PATIENT
  Age: 64 Year
  Sex: Male
  Weight: 73 kg

DRUGS (7)
  1. CORTISONE [Concomitant]
     Active Substance: CORTISONE\HYDROCORTISONE
     Indication: BACK DISORDER
     Dosage: 3 TIMES A YEAR
  2. DULERA [Concomitant]
     Active Substance: FORMOTEROL FUMARATE DIHYDRATE\MOMETASONE FUROATE
     Indication: CHRONIC OBSTRUCTIVE PULMONARY DISEASE
     Dosage: 200/5 MCG, 2 INHALATIONS TWICE A DAY
     Route: 055
     Dates: start: 201603
  3. ATORVASTATIN [Concomitant]
     Active Substance: ATORVASTATIN
     Indication: BLOOD CHOLESTEROL ABNORMAL
     Route: 048
  4. ESCITALOPRAM [Concomitant]
     Active Substance: ESCITALOPRAM OXALATE
     Indication: DEPRESSION
     Route: 048
     Dates: start: 20170620
  5. ALPRAZOLAM. [Concomitant]
     Active Substance: ALPRAZOLAM
     Indication: ANXIETY
     Dosage: 0.75 MG, PRESCRIBED 3 TIMES A DAY BUT HE ONLY TAKES IT TWICE A DAY
     Route: 048
     Dates: start: 20170626
  6. TUDORZA PRESSAIR [Suspect]
     Active Substance: ACLIDINIUM BROMIDE
     Indication: CHRONIC OBSTRUCTIVE PULMONARY DISEASE
     Route: 055
     Dates: start: 201603
  7. L THYROXINE [Concomitant]
     Active Substance: LEVOTHYROXINE SODIUM
     Indication: HYPOTHYROIDISM
     Route: 048

REACTIONS (8)
  - Thyroid hormones decreased [Unknown]
  - Anxiety [Unknown]
  - Paranoia [Unknown]
  - Device malfunction [Unknown]
  - Depression [Unknown]
  - Intentional device misuse [Unknown]
  - Dyspnoea [Unknown]
  - Weight decreased [Unknown]

NARRATIVE: CASE EVENT DATE: 2017
